FAERS Safety Report 4914034-1 (Version None)
Quarter: 2006Q1

REPORT INFORMATION
  Report Type: 
  Country: None (occurrence: None)
  Receive Date: 20060206
  Receipt Date: 20060123
  Transmission Date: 20060701
  Serious: Yes (Other)
  Sender: FDA-Public Use
  Company Number: 2006BH001251

PATIENT
  Age: 65 Year
  Sex: Female

DRUGS (1)
  1. IMMUNE GLOBULIN INTRAVENOUS (HUMAN) [Suspect]
     Indication: GUILLAIN-BARRE SYNDROME
     Dosage: 400 MG/KG

REACTIONS (4)
  - BLINDNESS CORTICAL [None]
  - CEREBRAL INFARCTION [None]
  - HYPERVISCOSITY SYNDROME [None]
  - HYPONATRAEMIA [None]
